FAERS Safety Report 20614377 (Version 2)
Quarter: 2022Q1

REPORT INFORMATION
  Report Type: Spontaneous
  Country: IT (occurrence: IT)
  Receive Date: 20220321
  Receipt Date: 20220330
  Transmission Date: 20220423
  Serious: Yes (Other)
  Sender: FDA-Public Use
  Company Number: None

PATIENT
  Age: 20 Year
  Sex: Male

DRUGS (2)
  1. HUMIRA [Suspect]
     Active Substance: ADALIMUMAB
     Indication: Product used for unknown indication
     Route: 058
  2. HYRIMOZ [Suspect]
     Active Substance: ADALIMUMAB-ADAZ
     Indication: Crohn^s disease
     Route: 058
     Dates: start: 20210101

REACTIONS (3)
  - Acne [Not Recovered/Not Resolved]
  - Hidradenitis [Not Recovered/Not Resolved]
  - Pyoderma [Not Recovered/Not Resolved]

NARRATIVE: CASE EVENT DATE: 20210726
